FAERS Safety Report 21411404 (Version 1)
Quarter: 2022Q4

REPORT INFORMATION
  Report Type: Report from Study
  Country: FR (occurrence: FR)
  Receive Date: 20221005
  Receipt Date: 20221005
  Transmission Date: 20230113
  Serious: Yes (Life-Threatening, Hospitalization)
  Sender: FDA-Public Use
  Company Number: FR-AMGEN-FRASP2022066108

PATIENT
  Age: 76 Year
  Sex: Male
  Weight: 64 kg

DRUGS (6)
  1. PANITUMUMAB [Suspect]
     Active Substance: PANITUMUMAB
     Indication: Colorectal cancer metastatic
     Dosage: 410 MILLIGRAM/ CUMULATIVE DOSE: 1230 MG
     Route: 042
     Dates: start: 20220303
  2. FLUOROURACIL [Suspect]
     Active Substance: FLUOROURACIL
     Indication: Colorectal cancer metastatic
     Dosage: 4400 MILLIGRAM/CUMULATIVE DOSE: 13200 MG
     Route: 041
     Dates: start: 20220303
  3. FLUOROURACIL [Suspect]
     Active Substance: FLUOROURACIL
     Dosage: 730 MILLIGRAM/ CUMULATIVE DOSE: 2190 MG
     Route: 040
     Dates: start: 20220303
  4. LEUCOVORIN CALCIUM [Suspect]
     Active Substance: LEUCOVORIN CALCIUM
     Indication: Colorectal cancer metastatic
     Dosage: 366 MILLIGRAM/CUMULATIVE DOSE: 1098 MG
     Route: 042
     Dates: start: 20220303
  5. IRINOTECAN [Suspect]
     Active Substance: IRINOTECAN
     Indication: Colorectal cancer metastatic
     Dosage: 270 MILLIGRAM/ CUMULATIVE DOSE: 810 MG
     Route: 042
     Dates: start: 20220303
  6. OXALIPLATIN [Suspect]
     Active Substance: OXALIPLATIN
     Indication: Colorectal cancer metastatic
     Dosage: 155 MILLIGRAM/ CUMULATIVE DOSE: 465 MG
     Route: 042
     Dates: start: 20220303

REACTIONS (1)
  - Diarrhoea [Recovered/Resolved]

NARRATIVE: CASE EVENT DATE: 20220401
